FAERS Safety Report 5662046-5 (Version None)
Quarter: 2008Q1

REPORT INFORMATION
  Report Type: 
  Country: None (occurrence: None)
  Receive Date: 20080312
  Receipt Date: 20080303
  Transmission Date: 20080703
  Serious: Yes (Other)
  Sender: FDA-Public Use
  Company Number: US-ELI_LILLY_AND_COMPANY-US200803000490

PATIENT
  Sex: Female
  Weight: 90.703 kg

DRUGS (5)
  1. CYMBALTA [Suspect]
     Indication: DEPRESSION
     Dosage: 60 MG, 2/D
     Dates: end: 20080116
  2. LYRICA [Concomitant]
     Indication: FIBROMYALGIA
     Dosage: 50 MG, 2/D
     Dates: start: 20071101
  3. CONTRACEPTIVES NOS [Concomitant]
  4. LORTAB [Concomitant]
  5. DARVOCET [Concomitant]

REACTIONS (1)
  - CONVULSION [None]
